FAERS Safety Report 25246384 (Version 1)
Quarter: 2025Q2

REPORT INFORMATION
  Report Type: Spontaneous
  Country: US (occurrence: US)
  Receive Date: 20250428
  Receipt Date: 20250428
  Transmission Date: 20250716
  Serious: Yes (Hospitalization)
  Sender: AMERICAN REGENT
  Company Number: US-AMERICAN REGENT INC-2025001737

PATIENT
  Age: 32 Year
  Sex: Male

DRUGS (2)
  1. ESTRADIOL VALERATE [Suspect]
     Active Substance: ESTRADIOL VALERATE
     Indication: Oestrogen therapy
     Route: 065
  2. ESTRADIOL VALERATE [Suspect]
     Active Substance: ESTRADIOL VALERATE
     Indication: Transgender hormonal therapy

REACTIONS (3)
  - Pancreatitis acute [Recovered/Resolved]
  - Product use in unapproved indication [Unknown]
  - Product use issue [Unknown]
